FAERS Safety Report 4458412-6 (Version None)
Quarter: 2004Q3

REPORT INFORMATION
  Report Type: 
  Country: None (occurrence: None)
  Receive Date: 20040924
  Receipt Date: 20040901
  Transmission Date: 20050211
  Serious: Yes (Hospitalization)
  Sender: FDA-Public Use
  Company Number: DE-MERCK-0409DEU00010

PATIENT
  Age: 30 Year
  Sex: Female
  Weight: 66 kg

DRUGS (11)
  1. [THERAPY UNSPECIFIED] [Concomitant]
     Indication: COUGH
     Route: 048
  2. BENZBROMARONE [Concomitant]
     Indication: HYPERURICAEMIA
     Route: 048
  3. DIGOXIN [Suspect]
     Indication: CARDIAC FAILURE CONGESTIVE
     Route: 048
     Dates: end: 20040810
  4. DIGOXIN [Suspect]
     Route: 048
     Dates: start: 20040812
  5. GLUCOSAMINE SULFATE [Concomitant]
     Route: 048
  6. HYDROCHLOROTHIAZIDE [Concomitant]
     Indication: CARDIAC FAILURE CONGESTIVE
     Route: 048
  7. LEVOTHYROXINE SODIUM [Concomitant]
     Route: 065
  8. COZAAR [Suspect]
     Indication: CARDIAC FAILURE CONGESTIVE
     Route: 048
     Dates: start: 20040701
  9. SPIRONOLACTONE [Concomitant]
     Indication: CARDIAC FAILURE CONGESTIVE
     Route: 048
  10. TORSEMIDE [Concomitant]
     Indication: CARDIAC FAILURE CONGESTIVE
     Route: 065
  11. VITAMINS (UNSPECIFIED) [Concomitant]
     Route: 048

REACTIONS (2)
  - CARDIOACTIVE DRUG LEVEL INCREASED [None]
  - DRUG INTERACTION [None]
